FAERS Safety Report 15706209 (Version 3)
Quarter: 2018Q4

REPORT INFORMATION
  Report Type: Spontaneous
  Country: MY (occurrence: MY)
  Receive Date: 20181210
  Receipt Date: 20181218
  Transmission Date: 20190205
  Serious: Yes (Death, Life-Threatening, Hospitalization, Other)
  Sender: FDA-Public Use
  Company Number: MY-PFIZER INC-2018505019

PATIENT
  Age: 63 Year
  Sex: Male

DRUGS (4)
  1. IMIPENEM [Suspect]
     Active Substance: IMIPENEM
     Indication: FEBRILE NEUTROPENIA
     Dosage: 500 MG, UNK
     Route: 042
  2. TAZOCIN [Suspect]
     Active Substance: PIPERACILLIN SODIUM\TAZOBACTAM SODIUM
     Indication: FEBRILE NEUTROPENIA
     Dosage: 4.5 G, 4X/DAY
     Route: 042
  3. FLUCONAZOLE. [Suspect]
     Active Substance: FLUCONAZOLE
     Indication: ANTIFUNGAL TREATMENT
     Dosage: 400 MG, DAILY (400 MG/DAY ONCE A DAY)
     Route: 042
  4. GENTAMICIN. [Suspect]
     Active Substance: GENTAMICIN
     Indication: FEBRILE NEUTROPENIA
     Dosage: 120 MG, 1X/DAY
     Route: 042

REACTIONS (5)
  - Brain midline shift [Fatal]
  - Systemic candida [Fatal]
  - Candida infection [Fatal]
  - Cerebral haemorrhage [Fatal]
  - Drug ineffective [Fatal]
